FAERS Safety Report 7643466-6 (Version None)
Quarter: 2011Q3

REPORT INFORMATION
  Report Type: 
  Country: None (occurrence: None)
  Receive Date: 20110729
  Receipt Date: 20110719
  Transmission Date: 20111222
  Serious: Yes (Hospitalization)
  Sender: FDA-Public Use
  Company Number: ES-JNJFOC-20110708067

PATIENT
  Age: 78 Year
  Sex: Male

DRUGS (7)
  1. ATENOLOL [Suspect]
     Route: 048
     Dates: start: 20060101, end: 20110313
  2. NORVASC [Suspect]
     Indication: HYPERTENSION
     Route: 048
     Dates: start: 20060101, end: 20110313
  3. HALOPERIDOL [Concomitant]
     Indication: AGITATION
     Route: 048
     Dates: start: 20100801
  4. ATENOLOL [Suspect]
     Indication: ATRIAL FIBRILLATION
     Route: 048
     Dates: start: 20110313, end: 20110314
  5. FLUOXETINE [Suspect]
     Indication: DEPRESSION
     Route: 048
     Dates: start: 20060101, end: 20110315
  6. LORAZEPAM [Suspect]
     Indication: INSOMNIA
     Route: 048
     Dates: start: 20110201, end: 20110313
  7. RISPERDAL [Suspect]
     Indication: AGITATION
     Route: 048
     Dates: start: 20060101, end: 20110313

REACTIONS (4)
  - HEPATIC FAILURE [None]
  - DEEP VEIN THROMBOSIS [None]
  - RESPIRATORY TRACT INFECTION [None]
  - PULMONARY EMBOLISM [None]
